FAERS Safety Report 9092869 (Version 1)
Quarter: 2013Q1

REPORT INFORMATION
  Report Type: Spontaneous
  Country: US (occurrence: None)
  Receive Date: 20130213
  Receipt Date: 20130213
  Transmission Date: 20140127
  Serious: Yes (Other)
  Sender: FDA-Public Use
  Company Number: None

PATIENT
  Age: 36 Year
  Sex: Female
  Weight: 63.96 kg

DRUGS (2)
  1. GILENYA [Suspect]
     Indication: MULTIPLE SCLEROSIS
     Dates: start: 20110321, end: 20130220
  2. GILENYA [Suspect]
     Indication: MULTIPLE SCLEROSIS
     Dates: start: 20110321, end: 20130220

REACTIONS (5)
  - Neck pain [None]
  - Back pain [None]
  - Heart rate decreased [None]
  - Palpitations [None]
  - Weight increased [None]
